FAERS Safety Report 9114589 (Version 1)
Quarter: 2013Q1

REPORT INFORMATION
  Report Type: Spontaneous
  Country: GB (occurrence: GB)
  Receive Date: 20130208
  Receipt Date: 20130208
  Transmission Date: 20140127
  Serious: Yes (Hospitalization)
  Sender: FDA-Public Use
  Company Number: GB-TEVA-383814ISR

PATIENT
  Sex: Male

DRUGS (2)
  1. TRAMADOL [Suspect]
     Dosage: 100 MILLIGRAM DAILY; 2X50MG
     Route: 065
     Dates: start: 20130121, end: 20130121
  2. BLOOD PRESSURE TABLETS [Concomitant]

REACTIONS (5)
  - Labyrinthitis [Recovering/Resolving]
  - Abasia [Unknown]
  - Coordination abnormal [Unknown]
  - Vomiting [Unknown]
  - Dizziness [Unknown]
